FAERS Safety Report 8497566 (Version 3)
Quarter: 2012Q4

REPORT INFORMATION
  Report Type: Report from Study
  Country: FR (occurrence: FR)
  Receive Date: 20120406
  Receipt Date: 20121203
  Transmission Date: 20130627
  Serious: Yes (Death, Hospitalization, Other)
  Sender: FDA-Public Use
  Company Number: FR-ROCHE-1023821

PATIENT
  Age: 71 Year
  Sex: Male

DRUGS (5)
  1. MYCOPHENOLATE MOFETIL [Suspect]
     Indication: RENAL TRANSPLANT
     Route: 065
     Dates: start: 20060226, end: 20120319
  2. BELATACEPT [Suspect]
     Indication: RENAL TRANSPLANT
     Route: 065
     Dates: start: 20060226, end: 20120319
  3. PREDNISONE [Suspect]
     Indication: RENAL TRANSPLANT
     Route: 065
     Dates: start: 20060226, end: 20120319
  4. PLAVIX [Concomitant]
     Route: 065
     Dates: start: 20060707
  5. APROVEL [Concomitant]
     Route: 065
     Dates: start: 20060601

REACTIONS (5)
  - Atrial fibrillation [Fatal]
  - Cardiac arrest [Fatal]
  - Respiratory distress [Not Recovered/Not Resolved]
  - Pneumonia [Not Recovered/Not Resolved]
  - Bronchopneumonia [Not Recovered/Not Resolved]
